FAERS Safety Report 25303165 (Version 2)
Quarter: 2025Q2

REPORT INFORMATION
  Report Type: Report from Study
  Country: US (occurrence: US)
  Receive Date: 20250512
  Receipt Date: 20250619
  Transmission Date: 20250716
  Serious: Yes (Other)
  Sender: MALLINCKRODT
  Company Number: US-MALLINCKRODT-MNK202502735

PATIENT
  Age: 60 Year
  Sex: Female

DRUGS (4)
  1. CORTICOTROPIN [Suspect]
     Active Substance: CORTICOTROPIN
     Indication: Rheumatoid arthritis
     Route: 058
     Dates: start: 202406
  2. CORTICOTROPIN [Suspect]
     Active Substance: CORTICOTROPIN
     Indication: Rheumatoid arthritis
  3. METHOTREXATE [Concomitant]
     Active Substance: METHOTREXATE
  4. RINVOQ [Concomitant]
     Active Substance: UPADACITINIB

REACTIONS (3)
  - Candida infection [Not Recovered/Not Resolved]
  - Bronchitis fungal [Not Recovered/Not Resolved]
  - Tongue coated [Not Recovered/Not Resolved]

NARRATIVE: CASE EVENT DATE: 20250101
